FAERS Safety Report 6747027-2 (Version None)
Quarter: 2010Q2

REPORT INFORMATION
  Report Type: 
  Country: None (occurrence: None)
  Receive Date: 20100528
  Receipt Date: 20100526
  Transmission Date: 20101027
  Serious: Yes (Life-Threatening, Hospitalization)
  Sender: FDA-Public Use
  Company Number: PHHY2010FR34242

PATIENT
  Sex: Female

DRUGS (5)
  1. VOLTAREN [Suspect]
     Indication: BACK PAIN
     Dosage: 75 MG/3 ML
     Route: 030
     Dates: start: 20100503
  2. MENOVA [Suspect]
     Indication: CONTRACEPTION
     Dosage: 1 TABLET PER DAY
     Route: 048
     Dates: start: 19990101, end: 20100504
  3. LEVOTHYROXINE SODIUM [Concomitant]
     Indication: HYPOTHYROIDISM
     Dosage: 125 MCG/DAY
     Route: 048
  4. XANAX [Concomitant]
     Indication: ANXIETY
     Dosage: 0.25 MG/DAY
     Route: 048
  5. LOVENOX [Concomitant]
     Indication: PROPHYLAXIS
     Dosage: 0.4 ML/DAY
     Dates: end: 20100407

REACTIONS (2)
  - FIBRIN D DIMER INCREASED [None]
  - PULMONARY EMBOLISM [None]
